FAERS Safety Report 5630506-9 (Version None)
Quarter: 2008Q1

REPORT INFORMATION
  Report Type: 
  Country: None (occurrence: None)
  Receive Date: 20080219
  Receipt Date: 20080208
  Transmission Date: 20080703
  Serious: Yes (Hospitalization)
  Sender: FDA-Public Use
  Company Number: HQWYE814311DEC06

PATIENT
  Sex: Female

DRUGS (3)
  1. AMIODARONE HCL [Suspect]
  2. ASPIRIN [Concomitant]
     Indication: PROPHYLAXIS
     Route: 048
     Dates: start: 20050114
  3. CLOPIDOGREL [Concomitant]
     Indication: PROPHYLAXIS
     Route: 048
     Dates: start: 20050114

REACTIONS (2)
  - BRONCHITIS [None]
  - HYPERTHYROIDISM [None]
